FAERS Safety Report 6072538-5 (Version None)
Quarter: 2009Q1

REPORT INFORMATION
  Report Type: 
  Country: None (occurrence: None)
  Receive Date: 20090210
  Receipt Date: 20090202
  Transmission Date: 20090719
  Serious: Yes (Other)
  Sender: FDA-Public Use
  Company Number: US-AVENTIS-200910892US

PATIENT
  Sex: Female

DRUGS (10)
  1. LANTUS [Suspect]
     Route: 058
     Dates: start: 20070101
  2. POTASSIUM CHLORIDE [Concomitant]
     Dosage: DOSE: 3 TABLETS
  3. AMILORIDE HYDROCHLORIDE [Concomitant]
     Dosage: DOSE: UNK
  4. ASPIRIN [Concomitant]
     Dosage: DOSE QUANTITY: 1
  5. VIT D [Concomitant]
     Dosage: DOSE: 1000 UNITS
  6. HUMALOG [Concomitant]
     Dosage: DOSE: 5 UNITS AT SUPPERTIME
  7. SIMVASTATIN [Concomitant]
  8. LISINOPRIL [Concomitant]
  9. METOPROLOL TARTRATE [Concomitant]
     Dosage: DOSE: 50 MG 1/2 TAB
  10. GLIMEPIRIDE [Concomitant]

REACTIONS (1)
  - CORONARY ARTERY BYPASS [None]
